FAERS Safety Report 6529237-2 (Version None)
Quarter: 2010Q1

REPORT INFORMATION
  Report Type: 
  Country: None (occurrence: None)
  Receive Date: 20100107
  Receipt Date: 20100104
  Transmission Date: 20100710
  Serious: Yes (Hospitalization)
  Sender: FDA-Public Use
  Company Number: DE-ROCHE-676769

PATIENT
  Sex: Male
  Weight: 76 kg

DRUGS (15)
  1. METHOXY POLYETHYLENE GLYCOL-EPOETIN BETA [Suspect]
     Dosage: LAST DOSE PRIOR TO SAE: 16 NOV 2009. FORM: PRE FILLED SYRINGE.STOPPED TEMPORARILY.
     Route: 042
     Dates: start: 20090415, end: 20091216
  2. CALCIUM ACETATE [Concomitant]
     Dates: start: 20080528
  3. ACETYLSALICYLIC ACID [Concomitant]
     Dates: start: 20080702
  4. METOPROLOL [Concomitant]
     Dates: start: 20081027
  5. DOXAZOSIN [Concomitant]
     Dates: start: 20081201
  6. NIFEDIPINE [Concomitant]
     Dates: start: 20081027
  7. OMEPRAZOL [Concomitant]
     Dates: start: 20080303
  8. SIMVASTATIN [Concomitant]
     Dates: start: 20080109
  9. SEVELAMER [Concomitant]
     Dates: start: 20080109
  10. VERAPAMIL [Concomitant]
     Dates: start: 20081124
  11. NOVAMINSULFON [Concomitant]
     Dates: start: 20071219
  12. CALCITRIOL [Concomitant]
     Dates: start: 20080109
  13. COLECALCIFEROL [Concomitant]
     Dosage: TDD: 700 IE
     Dates: start: 20070814
  14. ALLOPURINOL [Concomitant]
     Dates: start: 20091106
  15. FERRLECIT [Concomitant]
     Dates: start: 20091019

REACTIONS (1)
  - DEPRESSED LEVEL OF CONSCIOUSNESS [None]
